FAERS Safety Report 18440788 (Version 1)
Quarter: 2020Q4

REPORT INFORMATION
  Report Type: Report from Study
  Country: US (occurrence: US)
  Receive Date: 20201029
  Receipt Date: 20201029
  Transmission Date: 20210114
  Serious: Yes (Other)
  Sender: FDA-Public Use
  Company Number: US-ASTELLAS-2019US044924

PATIENT
  Sex: Male

DRUGS (1)
  1. ENZALUTAMIDE [Suspect]
     Active Substance: ENZALUTAMIDE
     Indication: PROSTATE CANCER
     Route: 048
     Dates: start: 20191024

REACTIONS (11)
  - Insomnia [Unknown]
  - Fatigue [Unknown]
  - Amnesia [Unknown]
  - Radiation injury [Unknown]
  - Alopecia [Unknown]
  - Dizziness [Unknown]
  - Polyp [Unknown]
  - Medical device site haemorrhage [Unknown]
  - Weight increased [Unknown]
  - Hair growth abnormal [Unknown]
  - Blood pressure increased [Unknown]
